FAERS Safety Report 9104646 (Version 1)
Quarter: 2013Q1

REPORT INFORMATION
  Report Type: Spontaneous
  Country: FR (occurrence: FR)
  Receive Date: 20130220
  Receipt Date: 20130220
  Transmission Date: 20140127
  Serious: Yes (Hospitalization)
  Sender: FDA-Public Use
  Company Number: FR-ROCHE-1191821

PATIENT
  Age: 66 Year
  Sex: Male

DRUGS (2)
  1. ROCEPHINE [Suspect]
     Indication: PRODUCT USED FOR UNKNOWN INDICATION
     Route: 065
     Dates: start: 20130111, end: 20130115
  2. AUGMENTIN [Suspect]
     Indication: ERYSIPELAS
     Route: 065
     Dates: start: 20130108, end: 20130111

REACTIONS (3)
  - Renal failure acute [Recovered/Resolved]
  - Rash [Recovered/Resolved]
  - Toxic epidermal necrolysis [Recovered/Resolved]
